FAERS Safety Report 5072093-2 (Version None)
Quarter: 2006Q3

REPORT INFORMATION
  Report Type: 
  Country: None (occurrence: None)
  Receive Date: 20060714
  Receipt Date: 20060512
  Transmission Date: 20061208
  Serious: No
  Sender: FDA-Public Use
  Company Number: 2006SP002033

PATIENT
  Age: 49 Year
  Sex: Female
  Weight: 83.4619 kg

DRUGS (6)
  1. LUNESTA [Suspect]
     Indication: INSOMNIA
     Dosage: 3 MG;HS;ORAL
     Route: 048
     Dates: start: 20060510
  2. IPRATROPIUM BROMIDE [Concomitant]
  3. ALBUTEROL SULFATE [Concomitant]
  4. NORTRIPTYLINE HCL [Concomitant]
  5. LAMOTRIGINE [Concomitant]
  6. KLONOPIN [Concomitant]

REACTIONS (1)
  - DYSGEUSIA [None]
